FAERS Safety Report 17201967 (Version 3)
Quarter: 2020Q4

REPORT INFORMATION
  Report Type: Spontaneous
  Country: US (occurrence: US)
  Receive Date: 20191226
  Receipt Date: 20201214
  Transmission Date: 20210113
  Serious: No
  Sender: FDA-Public Use
  Company Number: US-PFIZER INC-2019550261

PATIENT
  Age: 66 Year
  Sex: Male
  Weight: 122.47 kg

DRUGS (3)
  1. INLYTA [Suspect]
     Active Substance: AXITINIB
     Indication: RENAL CANCER
     Dosage: 5 MG
  2. INLYTA [Suspect]
     Active Substance: AXITINIB
     Dosage: 10 MG
  3. INLYTA [Suspect]
     Active Substance: AXITINIB
     Dosage: 7 MG

REACTIONS (7)
  - Product prescribing issue [Unknown]
  - Pharyngeal swelling [Unknown]
  - Intentional product misuse [Unknown]
  - Dysphonia [Unknown]
  - Abdominal pain upper [Unknown]
  - Constipation [Unknown]
  - Diarrhoea [Unknown]

NARRATIVE: CASE EVENT DATE: 201911
